FAERS Safety Report 7666593-6 (Version None)
Quarter: 2011Q3

REPORT INFORMATION
  Report Type: 
  Country: None (occurrence: None)
  Receive Date: 20110806
  Receipt Date: 20110329
  Transmission Date: 20111222
  Serious: No
  Sender: FDA-Public Use
  Company Number: US-ABBOTT-11P-163-0715227-00

PATIENT
  Sex: Female
  Weight: 82.628 kg

DRUGS (1)
  1. NIASPAN [Suspect]
     Indication: PRODUCT USED FOR UNKNOWN INDICATION
     Dosage: 500MG X1, FIRST NIGHT, THEN ADVANCED TO 500MG X2 TABS 29 MAR 2011
     Dates: start: 20110328

REACTIONS (2)
  - GENERALISED ERYTHEMA [None]
  - FLUSHING [None]
